FAERS Safety Report 4946341-0 (Version None)
Quarter: 2006Q1

REPORT INFORMATION
  Report Type: 
  Country: None (occurrence: None)
  Receive Date: 20060317
  Receipt Date: 20060307
  Transmission Date: 20060701
  Serious: Yes (Death)
  Sender: FDA-Public Use
  Company Number: JP-JNJFOC-20060302479

PATIENT
  Age: 73 Year
  Sex: Male

DRUGS (4)
  1. CRAVIT [Suspect]
     Route: 048
     Dates: start: 20060220, end: 20060220
  2. ZONISAMIDE [Concomitant]
     Route: 048
     Dates: end: 20060225
  3. CERCINE [Concomitant]
     Dates: end: 20060225
  4. AMLODIN [Concomitant]
     Route: 048
     Dates: end: 20060225

REACTIONS (4)
  - DEATH [None]
  - DRUG ERUPTION [None]
  - HAEMATOCHEZIA [None]
  - PNEUMONIA [None]
